FAERS Safety Report 7557026-9 (Version None)
Quarter: 2011Q2

REPORT INFORMATION
  Report Type: 
  Country: None (occurrence: None)
  Receive Date: 20110616
  Receipt Date: 20110616
  Transmission Date: 20111010
  Serious: Yes (Life-Threatening, Hospitalization)
  Sender: FDA-Public Use
  Company Number: None

PATIENT
  Age: 45 Year
  Sex: Female
  Weight: 56.6996 kg

DRUGS (1)
  1. AVELOX [Suspect]
     Indication: POST PROCEDURAL INFECTION
     Dosage: 400 QD PO
     Route: 048
     Dates: start: 20110322, end: 20110322

REACTIONS (2)
  - MALAISE [None]
  - ANAPHYLACTIC REACTION [None]
